FAERS Safety Report 10069368 (Version 2)
Quarter: 2014Q2

REPORT INFORMATION
  Report Type: Report from Study
  Country: ZA (occurrence: ZA)
  Receive Date: 20140410
  Receipt Date: 20140501
  Transmission Date: 20141212
  Serious: Yes (Death, Hospitalization)
  Sender: FDA-Public Use
  Company Number: ZA-ROCHE-1380040

PATIENT
  Age: 65 Year
  Sex: Male

DRUGS (2)
  1. MIRCERA [Suspect]
     Indication: NEPHROGENIC ANAEMIA
     Route: 058
     Dates: start: 20120314
  2. MIRCERA [Suspect]
     Route: 058
     Dates: start: 201205

REACTIONS (2)
  - Granuloma [Unknown]
  - Death [Fatal]
